FAERS Safety Report 12719066 (Version 2)
Quarter: 2016Q3

REPORT INFORMATION
  Report Type: Spontaneous
  Country: DE (occurrence: DE)
  Receive Date: 20160907
  Receipt Date: 20160928
  Transmission Date: 20161109
  Serious: Yes (Other)
  Sender: FDA-Public Use
  Company Number: DE-AUROBINDO-AUR-APL-2016-11189

PATIENT
  Age: 80 Year
  Sex: Female

DRUGS (3)
  1. RAMIPRIL-ISIS 5 MG TABLETS [Suspect]
     Active Substance: RAMIPRIL
     Indication: HYPERTENSION
     Dosage: 5 MG, UNK
     Route: 048
     Dates: start: 20160814, end: 20160816
  2. COSOPT [Concomitant]
     Active Substance: DORZOLAMIDE HYDROCHLORIDE\TIMOLOL MALEATE
     Indication: GLAUCOMA
     Dosage: UNK, DAILY
     Route: 065
     Dates: start: 201312
  3. LATANOPROST PFIZER [Concomitant]
     Active Substance: LATANOPROST
     Indication: GLAUCOMA
     Dosage: UNK, DAILY
     Route: 065
     Dates: start: 201404

REACTIONS (5)
  - Dizziness [Recovered/Resolved]
  - Activities of daily living impaired [Recovered/Resolved]
  - Cardiovascular disorder [Recovered/Resolved]
  - Nausea [Recovered/Resolved]
  - Pain [Recovered/Resolved]

NARRATIVE: CASE EVENT DATE: 20160814
